FAERS Safety Report 8824542 (Version 1)
Quarter: 2012Q4

REPORT INFORMATION
  Report Type: 
  Country: BR (occurrence: BR)
  Receive Date: 20121004
  Receipt Date: 20121004
  Transmission Date: 20130627
  Serious: Yes (Other)
  Sender: FDA-Public Use
  Company Number: BR-AMGEN-BRASP2012062097

PATIENT
  Age: 15 Year
  Sex: Female
  Weight: 54 kg

DRUGS (4)
  1. ENBREL [Suspect]
     Indication: JUVENILE ARTHRITIS
     Dosage: 50 mg, once weekly
     Route: 058
     Dates: start: 20110908
  2. ENBREL [Suspect]
     Dosage: 25 mg twice weekly
     Route: 058
  3. METHOTREXATE [Concomitant]
     Indication: JUVENILE ARTHRITIS
     Dosage: UNK
     Dates: start: 2009
  4. ENDOFOLIN [Concomitant]
     Indication: ANAEMIA PROPHYLAXIS
     Dosage: UNK
     Dates: start: 2009

REACTIONS (7)
  - Application site cellulitis [Unknown]
  - Injection site injury [Unknown]
  - Erythema [Unknown]
  - Papule [Unknown]
  - Injection site erythema [Unknown]
  - Injection site oedema [Unknown]
  - Injection site pain [Unknown]
